FAERS Safety Report 13598948 (Version 3)
Quarter: 2017Q3

REPORT INFORMATION
  Report Type: Spontaneous
  Country: US (occurrence: US)
  Receive Date: 20170531
  Receipt Date: 20170728
  Transmission Date: 20171127
  Serious: Yes (Other)
  Sender: FDA-Public Use
  Company Number: US-INCYTE CORPORATION-2017IN004225

PATIENT

DRUGS (10)
  1. JAKAFI [Suspect]
     Active Substance: RUXOLITINIB
     Indication: POLYCYTHAEMIA VERA
     Dosage: 20 MG, BID
     Route: 048
  2. IRON                               /00023503/ [Concomitant]
     Active Substance: IRON
     Indication: PRODUCT USED FOR UNKNOWN INDICATION
  3. JAKAFI [Suspect]
     Active Substance: RUXOLITINIB
     Dosage: 10 MG, BID
     Route: 048
     Dates: start: 2014
  4. PROBIOTIC                          /06395501/ [Concomitant]
     Active Substance: BIFIDOBACTERIUM ANIMALIS LACTIS
     Indication: PRODUCT USED FOR UNKNOWN INDICATION
  5. ASPIRIN                            /00002701/ [Concomitant]
     Active Substance: ASPIRIN
     Indication: PRODUCT USED FOR UNKNOWN INDICATION
  6. COD LIVER OIL [Concomitant]
     Active Substance: COD LIVER OIL
     Indication: PRODUCT USED FOR UNKNOWN INDICATION
     Dosage: 1 BY MOUTH QOD, 1 TABELSPOON QD
     Route: 048
  7. HYDROXYUREA. [Suspect]
     Active Substance: HYDROXYUREA
     Indication: PRODUCT USED FOR UNKNOWN INDICATION
  8. VITAMIN B COMPLEX [Concomitant]
     Active Substance: CYANOCOBALAMIN\DEXPANTHENOL\NIACINAMIDE\PYRIDOXINE HYDROCHLORIDE\RIBOFLAVIN 5^-PHOSPHATE SODIUM\THIAMINE HYDROCHLORIDE\VITAMIN B COMPLEX
     Indication: PRODUCT USED FOR UNKNOWN INDICATION
  9. CALCIUM MAGNESIUM                  /00591201/ [Concomitant]
     Indication: PRODUCT USED FOR UNKNOWN INDICATION
     Dosage: 1 TABLESPOON DAILY
     Route: 048
  10. MULTIVITAMIN                       /07504101/ [Concomitant]
     Active Substance: VITAMINS
     Indication: PRODUCT USED FOR UNKNOWN INDICATION
     Dosage: 1 DF, QD
     Route: 048

REACTIONS (11)
  - Skin cancer [Unknown]
  - Splenomegaly [Unknown]
  - Arteriosclerosis [Unknown]
  - Platelet count increased [Unknown]
  - Solar lentigo [Unknown]
  - Iron deficiency anaemia [Unknown]
  - Anaemia [Unknown]
  - Ephelides [Unknown]
  - Goitre [Unknown]
  - Squamous cell carcinoma [Unknown]
  - Abdominal bruit [Unknown]

NARRATIVE: CASE EVENT DATE: 2011
